FAERS Safety Report 7904152-8 (Version None)
Quarter: 2011Q4

REPORT INFORMATION
  Report Type: 
  Country: None (occurrence: None)
  Receive Date: 20111109
  Receipt Date: 20111104
  Transmission Date: 20120403
  Serious: Yes (Death)
  Sender: FDA-Public Use
  Company Number: US-PFIZER INC-2011270755

PATIENT
  Sex: Male
  Weight: 83.9 kg

DRUGS (6)
  1. SILDENAFIL CITRATE [Suspect]
     Indication: PULMONARY ARTERIAL HYPERTENSION
     Dosage: 25 MG EVERY EIGHT HOURS
     Route: 048
     Dates: start: 20110814
  2. REVATIO [Suspect]
     Indication: PULMONARY ARTERIAL HYPERTENSION
     Dosage: 20 MG, 3X/DAY
     Route: 048
     Dates: start: 20100413, end: 20110814
  3. DIGOXIN [Concomitant]
     Indication: ATRIAL FIBRILLATION
     Dosage: 0.125 MG, DAILY
     Route: 048
  4. PREDNISONE [Concomitant]
     Indication: PULMONARY ARTERIAL HYPERTENSION
     Dosage: 10 MG, DAILY
     Route: 048
  5. ALBUTEROL [Concomitant]
     Indication: OBSTRUCTIVE AIRWAYS DISORDER
     Dosage: 2.5 MG, EVERY 4 HRS
     Route: 048
  6. TREPROSTINOL [Concomitant]
     Indication: PULMONARY ARTERIAL HYPERTENSION
     Dosage: SIX PUFFS FOUR TIMES A DAY

REACTIONS (1)
  - CARDIAC ARREST [None]
